FAERS Safety Report 6695668-3 (Version None)
Quarter: 2010Q2

REPORT INFORMATION
  Report Type: 
  Country: None (occurrence: None)
  Receive Date: 20100426
  Receipt Date: 20100414
  Transmission Date: 20101027
  Serious: No
  Sender: FDA-Public Use
  Company Number: US-BIOGENIDEC-2010BI012663

PATIENT
  Sex: Female

DRUGS (2)
  1. AVONEX [Suspect]
     Indication: MULTIPLE SCLEROSIS
     Route: 030
     Dates: start: 20020805
  2. AVONEX [Suspect]
     Route: 030
     Dates: start: 20070331

REACTIONS (3)
  - COGNITIVE DISORDER [None]
  - CYSTITIS [None]
  - MULTIPLE SCLEROSIS RELAPSE [None]
